FAERS Safety Report 7078857-8 (Version None)
Quarter: 2010Q4

REPORT INFORMATION
  Report Type: 
  Country: None (occurrence: None)
  Receive Date: 20101102
  Receipt Date: 20101025
  Transmission Date: 20110411
  Serious: Yes (Hospitalization)
  Sender: FDA-Public Use
  Company Number: GB-PFIZER INC-2006059162

PATIENT
  Age: 69 Year
  Sex: Male
  Weight: 85 kg

DRUGS (6)
  1. SUNITINIB MALATE [Suspect]
     Indication: METASTATIC RENAL CELL CARCINOMA
     Dosage: 50 MG, 1X/DAY
     Route: 048
     Dates: start: 20060413, end: 20060501
  2. SUNITINIB MALATE [Suspect]
     Dosage: 37.5 MG, 1X/DAY
     Route: 048
  3. ATORVASTATIN [Concomitant]
     Route: 048
     Dates: start: 19970101, end: 20060501
  4. ATENOLOL [Concomitant]
     Route: 048
     Dates: start: 19970101
  5. LANSOPRAZOLE [Concomitant]
     Route: 048
     Dates: start: 19970101
  6. ALLOPURINOL [Concomitant]
     Route: 048
     Dates: start: 19970101

REACTIONS (1)
  - HEPATITIS [None]
